FAERS Safety Report 10786233 (Version 4)
Quarter: 2015Q2

REPORT INFORMATION
  Report Type: Spontaneous
  Country: DE (occurrence: DE)
  Receive Date: 20150211
  Receipt Date: 20150528
  Transmission Date: 20150821
  Serious: Yes (Hospitalization, Other)
  Sender: FDA-Public Use
  Company Number: DE-UCBSA-2014021723

PATIENT
  Age: 44 Year
  Sex: Female
  Weight: 85 kg

DRUGS (7)
  1. BISOPROLOL [Concomitant]
     Active Substance: BISOPROLOL
     Indication: RESTLESS LEGS SYNDROME
     Dosage: 2.5 MG
     Route: 048
     Dates: start: 2007
  2. AMITRIPTYLIN [Concomitant]
     Active Substance: AMITRIPTYLINE
     Indication: PAIN
     Dosage: 25 MG
     Route: 048
     Dates: start: 20140806
  3. AMITRIPTYLIN [Concomitant]
     Active Substance: AMITRIPTYLINE
     Dosage: 25 INCREASED TO 75 MG
     Route: 048
     Dates: start: 20140806
  4. LEVODOPA [Concomitant]
     Active Substance: LEVODOPA
     Indication: RESTLESS LEGS SYNDROME
     Dosage: 100/25, AS NEEDED (PRN)
     Route: 048
  5. IBUPROFEN. [Concomitant]
     Active Substance: IBUPROFEN
     Indication: PAIN
     Dosage: 600 (4-7 DAILY)
     Route: 048
     Dates: start: 20140806
  6. NEUPRO [Suspect]
     Active Substance: ROTIGOTINE
     Indication: RESTLESS LEGS SYNDROME
     Dosage: 6 MG, ONCE DAILY (QD)
     Route: 062
  7. BISOPROLOL [Concomitant]
     Active Substance: BISOPROLOL
     Indication: UNEVALUABLE EVENT

REACTIONS (6)
  - Off label use [Unknown]
  - Pain [Not Recovered/Not Resolved]
  - Tarsal tunnel syndrome [Unknown]
  - Lumbosacral plexus lesion [Not Recovered/Not Resolved]
  - Retroperitoneal fibrosis [Not Recovered/Not Resolved]
  - Overdose [Unknown]

NARRATIVE: CASE EVENT DATE: 201402
